FAERS Safety Report 19748809 (Version 6)
Quarter: 2022Q4

REPORT INFORMATION
  Report Type: Report from Study
  Country: CN (occurrence: None)
  Receive Date: 20210826
  Receipt Date: 20221214
  Transmission Date: 20230112
  Serious: Yes (Hospitalization)
  Sender: FDA-Public Use
  Company Number: CN-ROCHE-2894336

PATIENT
  Age: 57 Year
  Sex: Female
  Weight: 49 kg

DRUGS (16)
  1. ATEZOLIZUMAB [Suspect]
     Active Substance: ATEZOLIZUMAB
     Indication: Small cell lung cancer
     Dosage: 21/JUL/2021,MOST RECENT DOSE OF ATEZOLIZUMAB.
     Route: 041
     Dates: start: 20210201, end: 20210810
  2. ATEZOLIZUMAB [Suspect]
     Active Substance: ATEZOLIZUMAB
     Route: 041
     Dates: start: 20211104
  3. CISPLATIN [Suspect]
     Active Substance: CISPLATIN
     Indication: Small cell lung cancer
     Dosage: MOST RECENT DOSE ON 10/APR/2021.
     Route: 042
     Dates: start: 20210201
  4. ETOPOSIDE [Suspect]
     Active Substance: ETOPOSIDE
     Indication: Small cell lung cancer
     Dosage: MOST RECENT DOSE ON 10/APR/2021
     Route: 042
     Dates: start: 20210201
  5. ESTAZOLAM [Concomitant]
     Active Substance: ESTAZOLAM
     Dates: start: 20210818, end: 20210825
  6. ESTAZOLAM [Concomitant]
     Active Substance: ESTAZOLAM
     Dates: start: 20220328, end: 20220329
  7. ESTAZOLAM [Concomitant]
     Active Substance: ESTAZOLAM
     Dates: start: 20220421, end: 20220421
  8. ESTAZOLAM [Concomitant]
     Active Substance: ESTAZOLAM
     Dates: start: 20220918, end: 20220921
  9. ESTAZOLAM [Concomitant]
     Active Substance: ESTAZOLAM
     Dates: start: 20220922
  10. ZOLEDRONIC ACID [Concomitant]
     Active Substance: ZOLEDRONIC ACID
     Dates: start: 20211123, end: 20211123
  11. ZOLEDRONIC ACID [Concomitant]
     Active Substance: ZOLEDRONIC ACID
     Dates: start: 20220104, end: 20220104
  12. ZOLEDRONIC ACID [Concomitant]
     Active Substance: ZOLEDRONIC ACID
     Dates: start: 20220329, end: 20220329
  13. ZOLEDRONIC ACID [Concomitant]
     Active Substance: ZOLEDRONIC ACID
     Dates: start: 20220517, end: 20220517
  14. ZOLEDRONIC ACID [Concomitant]
     Active Substance: ZOLEDRONIC ACID
     Dates: start: 20220701, end: 20220701
  15. ZOLEDRONIC ACID [Concomitant]
     Active Substance: ZOLEDRONIC ACID
     Dates: start: 20220811, end: 20220811
  16. LEVOFLOXACIN HYDROCHLORIDE [Concomitant]
     Active Substance: LEVOFLOXACIN HYDROCHLORIDE
     Dates: start: 20220915, end: 20220918

REACTIONS (1)
  - Dyspepsia [Not Recovered/Not Resolved]

NARRATIVE: CASE EVENT DATE: 20210810
